FAERS Safety Report 16623554 (Version 1)
Quarter: 2019Q3

REPORT INFORMATION
  Report Type: Spontaneous
  Country: BR (occurrence: BR)
  Receive Date: 20190724
  Receipt Date: 20190724
  Transmission Date: 20191004
  Serious: Yes (Other)
  Sender: FDA-Public Use
  Company Number: BR-SA-2018SA311441

PATIENT
  Sex: Female
  Weight: 54 kg

DRUGS (1)
  1. CLEXANE [Suspect]
     Active Substance: ENOXAPARIN SODIUM
     Indication: HYPERCOAGULATION
     Dosage: 60 MG, QD
     Route: 058
     Dates: start: 20181101

REACTIONS (6)
  - Drug ineffective [Unknown]
  - Antiphospholipid syndrome [Unknown]
  - Adverse event [Unknown]
  - Off label use [Unknown]
  - Abortion [Unknown]
  - Exposure during pregnancy [Unknown]
